FAERS Safety Report 4426824-2 (Version None)
Quarter: 2004Q3

REPORT INFORMATION
  Report Type: 
  Country: None (occurrence: None)
  Receive Date: 20040816
  Receipt Date: 20040728
  Transmission Date: 20050211
  Serious: Yes (Life-Threatening)
  Sender: FDA-Public Use
  Company Number: JP-GLAXOSMITHKLINE-B0341135A

PATIENT
  Age: 91 Year
  Sex: Female

DRUGS (1)
  1. PAXIL [Suspect]
     Indication: DEPRESSION
     Dosage: 10MG PER DAY
     Route: 048
     Dates: start: 20040623, end: 20040707

REACTIONS (3)
  - DEPRESSED LEVEL OF CONSCIOUSNESS [None]
  - EATING DISORDER [None]
  - HYPONATRAEMIA [None]
